FAERS Safety Report 4368227-5 (Version None)
Quarter: 2004Q2

REPORT INFORMATION
  Report Type: 
  Country: None (occurrence: None)
  Receive Date: 20040527
  Receipt Date: 20040512
  Transmission Date: 20050107
  Serious: No
  Sender: FDA-Public Use
  Company Number: A01200402250

PATIENT
  Age: 55 Year
  Sex: Male

DRUGS (3)
  1. ELOXATIN [Suspect]
     Indication: METASTASES TO LYMPH NODES
     Dosage: 130 MG/M2 OTHER INTRAVENOUS NOS
     Route: 042
     Dates: start: 20040511, end: 20040511
  2. ELOXATIN [Suspect]
     Indication: RECTAL CANCER METASTATIC
     Dosage: 130 MG/M2 OTHER INTRAVENOUS NOS
     Route: 042
     Dates: start: 20040511, end: 20040511
  3. CAPECITABINE [Concomitant]

REACTIONS (1)
  - ANGINA PECTORIS [None]
